FAERS Safety Report 13472285 (Version 2)
Quarter: 2017Q2

REPORT INFORMATION
  Report Type: Spontaneous
  Country: CN (occurrence: CN)
  Receive Date: 20170424
  Receipt Date: 20170509
  Transmission Date: 20170830
  Serious: Yes (Hospitalization)
  Sender: FDA-Public Use
  Company Number: CN-GLAXOSMITHKLINE-CN2017GSK055912

PATIENT
  Age: 38 Year
  Sex: Male

DRUGS (3)
  1. FLIXONASE NASAL SPRAY [Suspect]
     Active Substance: FLUTICASONE PROPIONATE
     Indication: NASAL OBSTRUCTION
  2. FLIXONASE NASAL SPRAY [Suspect]
     Active Substance: FLUTICASONE PROPIONATE
     Indication: DIZZINESS
  3. FLIXONASE NASAL SPRAY [Suspect]
     Active Substance: FLUTICASONE PROPIONATE
     Indication: RHINITIS ALLERGIC
     Dosage: UNK
     Dates: start: 20170226, end: 201704

REACTIONS (4)
  - Drug ineffective [Unknown]
  - Drug resistance [Unknown]
  - Suspected counterfeit product [Unknown]
  - Discomfort [Recovered/Resolved]

NARRATIVE: CASE EVENT DATE: 20170226
